FAERS Safety Report 22255682 (Version 2)
Quarter: 2023Q2

REPORT INFORMATION
  Report Type: Spontaneous
  Country: US (occurrence: US)
  Receive Date: 20230426
  Receipt Date: 20230516
  Transmission Date: 20230721
  Serious: Yes (Other)
  Sender: FDA-Public Use
  Company Number: US-Calliditas-2023CAL00403

PATIENT
  Age: 64 Year
  Sex: Female
  Weight: 79.5 kg

DRUGS (4)
  1. TARPEYO [Suspect]
     Active Substance: BUDESONIDE
     Indication: IgA nephropathy
     Dosage: 16 (4 MG CAPSULES) ONCE DAILY
     Route: 048
     Dates: start: 20230313
  2. LOSARTAN [Concomitant]
     Active Substance: LOSARTAN
     Dosage: INCREASED FROM 50 MG TO 100 MG
  3. POTASSIUM CHLORIDE [Concomitant]
     Active Substance: POTASSIUM CHLORIDE
  4. LASIX [Concomitant]
     Active Substance: FUROSEMIDE

REACTIONS (3)
  - Hypertensive urgency [Recovering/Resolving]
  - Anxiety [Recovering/Resolving]
  - Headache [Recovering/Resolving]

NARRATIVE: CASE EVENT DATE: 20230301
